FAERS Safety Report 14440610 (Version 3)
Quarter: 2018Q1

REPORT INFORMATION
  Report Type: Spontaneous
  Country: BR (occurrence: BR)
  Receive Date: 20180125
  Receipt Date: 20180205
  Transmission Date: 20180509
  Serious: Yes (Other)
  Sender: FDA-Public Use
  Company Number: BR-GALDERMA-BR18001065

PATIENT
  Sex: Male
  Weight: 53 kg

DRUGS (2)
  1. CLOB-X CREAM [Suspect]
     Active Substance: CLOBETASOL PROPIONATE
     Indication: PSORIASIS
     Dosage: 0.05%
     Route: 061
  2. SERTRALINE HYDROCHLORIDE. [Concomitant]
     Active Substance: SERTRALINE HYDROCHLORIDE
     Indication: PRODUCT USED FOR UNKNOWN INDICATION
     Route: 065

REACTIONS (9)
  - Skin discolouration [Unknown]
  - Overdose [Unknown]
  - Intentional product use issue [Unknown]
  - Excessive eye blinking [Unknown]
  - Visual impairment [Unknown]
  - Vision blurred [Unknown]
  - Eye pruritus [Unknown]
  - Skin hyperpigmentation [Unknown]
  - Blindness [Unknown]
